FAERS Safety Report 9471093 (Version 1)
Quarter: 2013Q3

REPORT INFORMATION
  Report Type: Spontaneous
  Country: GB (occurrence: GB)
  Receive Date: 20130822
  Receipt Date: 20130822
  Transmission Date: 20140515
  Serious: Yes (Disabling, Other)
  Sender: FDA-Public Use
  Company Number: GB-B.I. PHARMACEUTICALS,INC./RIDGEFIELD-2013-UK-01713UK

PATIENT
  Age: 78 Year
  Sex: Female
  Weight: 101.6 kg

DRUGS (8)
  1. PRADAXA [Suspect]
     Indication: ATRIAL FIBRILLATION
     Dosage: 220 MG
     Dates: start: 20130207
  2. GARLIC [Concomitant]
     Dosage: 1 ANZ
     Dates: start: 2007
  3. GLUCOSAMINE [WITH CHONDROITIN] [Concomitant]
     Dosage: 1 ANZ
     Dates: start: 2007
  4. [GLUCOSAMINE WITH] CHONDROITIN [Concomitant]
     Dosage: 1 ANZ
     Dates: start: 2007
  5. OMEGA-3 FISH OIL [Concomitant]
     Dosage: 1 ANZ
     Dates: start: 2007
  6. VITAMIN B1 [Concomitant]
     Dosage: 1 ANZ
     Dates: start: 2007
  7. VITAMIN C [Concomitant]
     Dosage: 1 ANZ
     Dates: start: 2007
  8. VITAMIN D3 [Concomitant]
     Dosage: 1 ANZ
     Dates: start: 201301

REACTIONS (1)
  - Macular degeneration [Not Recovered/Not Resolved]
